FAERS Safety Report 5080956-7 (Version None)
Quarter: 2006Q3

REPORT INFORMATION
  Report Type: 
  Country: None (occurrence: None)
  Receive Date: 20060810
  Receipt Date: 20060803
  Transmission Date: 20061208
  Serious: Yes (Life-Threatening)
  Sender: FDA-Public Use
  Company Number: 2006-08-0112

PATIENT
  Age: 53 Year
  Sex: Female

DRUGS (6)
  1. BETAMETHASONE [Suspect]
     Indication: DENTAL IMPLANTATION
     Dosage: ORAL
     Route: 048
     Dates: start: 20051001, end: 20051001
  2. BETAMETHASONE [Suspect]
     Indication: DENTAL IMPLANTATION
     Dosage: ORAL
     Route: 048
     Dates: start: 20051001, end: 20060608
  3. BETAMETHASONE [Suspect]
     Indication: DENTAL IMPLANTATION
     Dosage: ORAL
     Route: 048
     Dates: start: 20060608, end: 20060608
  4. CEFAPEROS [Suspect]
     Indication: DENTAL IMPLANTATION
     Dates: start: 20051001, end: 20051001
  5. CEFAPEROS [Suspect]
     Indication: DENTAL IMPLANTATION
     Dates: start: 20051001, end: 20060608
  6. CEFAPEROS [Suspect]
     Indication: DENTAL IMPLANTATION
     Dates: start: 20060608, end: 20060608

REACTIONS (3)
  - ANAPHYLACTIC SHOCK [None]
  - LOSS OF CONSCIOUSNESS [None]
  - MALAISE [None]
